FAERS Safety Report 25228778 (Version 4)
Quarter: 2025Q3

REPORT INFORMATION
  Report Type: Report from Study
  Country: SA (occurrence: SA)
  Receive Date: 20250423
  Receipt Date: 20250804
  Transmission Date: 20251020
  Serious: Yes (Death, Hospitalization, Other)
  Sender: TAKEDA
  Company Number: SA-TAKEDA-2025TUS038502

PATIENT
  Age: 0 Year
  Sex: Female

DRUGS (3)
  1. HUMAN IMMUNOGLOBULIN G [Suspect]
     Active Substance: HUMAN IMMUNOGLOBULIN G
     Indication: Primary immunodeficiency syndrome
     Dosage: 2 GRAM, Q2WEEKS
     Dates: start: 20250226
  2. HUMAN IMMUNOGLOBULIN G [Suspect]
     Active Substance: HUMAN IMMUNOGLOBULIN G
     Dosage: UNK UNK, 1/WEEK
  3. HUMAN IMMUNOGLOBULIN G [Suspect]
     Active Substance: HUMAN IMMUNOGLOBULIN G
     Dosage: 2 GRAM, 1/WEEK
     Dates: end: 20250724

REACTIONS (5)
  - Death [Fatal]
  - Blood sodium increased [Not Recovered/Not Resolved]
  - Dehydration [Not Recovered/Not Resolved]
  - Pyrexia [Not Recovered/Not Resolved]
  - Allergy to immunoglobulin therapy [Unknown]

NARRATIVE: CASE EVENT DATE: 20250611
